FAERS Safety Report 14727971 (Version 1)
Quarter: 2018Q2

REPORT INFORMATION
  Report Type: Spontaneous
  Country: IT (occurrence: IT)
  Receive Date: 20180406
  Receipt Date: 20180406
  Transmission Date: 20180711
  Serious: Yes (Hospitalization)
  Sender: FDA-Public Use
  Company Number: IT-PFIZER INC-2018133258

PATIENT
  Age: 68 Year
  Sex: Female

DRUGS (2)
  1. ARIXTRA [Concomitant]
     Active Substance: FONDAPARINUX SODIUM
  2. MEDROL [Suspect]
     Active Substance: METHYLPREDNISOLONE
     Dosage: 32 MG, 1X/DAY
     Route: 048
     Dates: end: 20170730

REACTIONS (2)
  - Sepsis [Unknown]
  - Neutropenia [Unknown]

NARRATIVE: CASE EVENT DATE: 20170730
